FAERS Safety Report 8988018 (Version 1)
Quarter: 2012Q4

REPORT INFORMATION
  Report Type: 
  Country: AE (occurrence: AE)
  Receive Date: 20121227
  Receipt Date: 20121227
  Transmission Date: 20130627
  Serious: Yes (Death, Other)
  Sender: FDA-Public Use
  Company Number: AE-JNJFOC-20121207543

PATIENT
  Age: 16 Year
  Sex: Female

DRUGS (9)
  1. INFLIXIMAB, RECOMBINANT [Suspect]
     Indication: JUVENILE ARTHRITIS
     Route: 042
  2. CORTICOSTEROID NOS [Suspect]
     Indication: JUVENILE ARTHRITIS
  3. CYCLOSPORINE [Suspect]
     Indication: JUVENILE ARTHRITIS
  4. METHOTREXATE [Suspect]
     Indication: JUVENILE ARTHRITIS
  5. ETANERCEPT [Suspect]
     Indication: JUVENILE ARTHRITIS
  6. THALIDOMIDE [Suspect]
     Indication: JUVENILE ARTHRITIS
  7. ANAKINRA [Suspect]
     Indication: JUVENILE ARTHRITIS
  8. TACROLIMUS [Suspect]
     Indication: JUVENILE ARTHRITIS
  9. ETOPOSIDE [Suspect]
     Indication: JUVENILE ARTHRITIS

REACTIONS (2)
  - Multi-organ failure [Fatal]
  - Peripheral T-cell lymphoma unspecified [Unknown]
